FAERS Safety Report 7021866-5 (Version None)
Quarter: 2010Q3

REPORT INFORMATION
  Report Type: 
  Country: None (occurrence: None)
  Receive Date: 20100930
  Receipt Date: 20100924
  Transmission Date: 20110219
  Serious: Yes (Other)
  Sender: FDA-Public Use
  Company Number: US-JNJFOC-20100801217

PATIENT
  Age: 43 Year
  Sex: Female
  Weight: 130.18 kg

DRUGS (3)
  1. STELARA [Suspect]
     Indication: PSORIASIS
     Route: 058
  2. STELARA [Suspect]
     Route: 058
  3. STELARA [Suspect]
     Route: 058

REACTIONS (3)
  - ARTHRALGIA [None]
  - PSORIASIS [None]
  - RASH PUSTULAR [None]
